FAERS Safety Report 5764487-4 (Version None)
Quarter: 2008Q2

REPORT INFORMATION
  Report Type: 
  Country: None (occurrence: None)
  Receive Date: 20080610
  Receipt Date: 20080529
  Transmission Date: 20081010
  Serious: Yes (Hospitalization)
  Sender: FDA-Public Use
  Company Number: DE-PFIZER INC-2006083391

PATIENT
  Sex: Female
  Weight: 85 kg

DRUGS (7)
  1. SU-011,248 [Suspect]
     Indication: METASTATIC RENAL CELL CARCINOMA
     Route: 048
  2. DYTIDE [Concomitant]
     Route: 048
     Dates: start: 20060601, end: 20060601
  3. METAMIZOLE [Concomitant]
     Route: 048
     Dates: start: 20060601
  4. OMEPRAZOLE [Concomitant]
     Route: 048
     Dates: start: 20060508
  5. RAMIPRIL [Concomitant]
     Route: 048
     Dates: start: 20060508
  6. ALLOPURINOL [Concomitant]
     Route: 048
     Dates: start: 20060508
  7. MACROGOL [Concomitant]
     Route: 048
     Dates: start: 20060214

REACTIONS (3)
  - FATIGUE [None]
  - NAUSEA [None]
  - PAIN [None]
